FAERS Safety Report 18162309 (Version 1)
Quarter: 2020Q3

REPORT INFORMATION
  Report Type: Other
  Country: CA (occurrence: CA)
  Receive Date: 20200818
  Receipt Date: 20200818
  Transmission Date: 20201103
  Serious: Yes (Life-Threatening, Hospitalization, Other)
  Sender: FDA-Public Use
  Company Number: CA-ACCORD-195423

PATIENT
  Age: 61 Year
  Sex: Male

DRUGS (5)
  1. RAMIPRIL. [Suspect]
     Active Substance: RAMIPRIL
     Indication: ANGIOTENSIN CONVERTING ENZYME
     Dosage: 1 EVERY 1 DAYS
     Route: 065
  2. AFINITOR [Interacting]
     Active Substance: EVEROLIMUS
     Indication: METASTATIC RENAL CELL CARCINOMA
     Dosage: 1 EVERY 1 DAYS
     Route: 065
  3. HYDROCHLOROTHIAZIDE/TRIAMTERENE [Concomitant]
     Active Substance: HYDROCHLOROTHIAZIDE\TRIAMTERENE
     Dosage: 1 EVERY 1 DAYS
     Route: 065
  4. OMEPRAZOLE. [Concomitant]
     Active Substance: OMEPRAZOLE
     Dosage: 1 EVERY 1 DAYS
     Route: 065
  5. AFINITOR [Interacting]
     Active Substance: EVEROLIMUS
     Indication: METASTATIC RENAL CELL CARCINOMA
     Dosage: 1 EVERY 1 DAYS
     Route: 065

REACTIONS (3)
  - Angioedema [Recovered/Resolved]
  - Drug interaction [Unknown]
  - Tongue oedema [Recovered/Resolved]
